FAERS Safety Report 6106425-0 (Version None)
Quarter: 2009Q1

REPORT INFORMATION
  Report Type: 
  Country: None (occurrence: None)
  Receive Date: 20090306
  Receipt Date: 20090227
  Transmission Date: 20090719
  Serious: Yes (Hospitalization, Other)
  Sender: FDA-Public Use
  Company Number: CN-ELI_LILLY_AND_COMPANY-CN200903000217

PATIENT
  Sex: Male
  Weight: 80 kg

DRUGS (5)
  1. ALIMTA [Suspect]
     Indication: LUNG CANCER METASTATIC
     Dosage: 1000 MG, OTHER
     Route: 042
     Dates: start: 20090214, end: 20090214
  2. ZOLEDRONIC ACID [Concomitant]
     Indication: METASTASES TO BONE
     Dosage: 4 MG, MONTHLY (1/M)
     Route: 042
     Dates: start: 20090213, end: 20090213
  3. FOLIC ACID [Concomitant]
  4. VITAMIN B-12 [Concomitant]
  5. DEXAMETHASONE [Concomitant]

REACTIONS (5)
  - NEUTROPHIL COUNT DECREASED [None]
  - PALPITATIONS [None]
  - PLATELET COUNT DECREASED [None]
  - TACHYCARDIA [None]
  - WHITE BLOOD CELL COUNT DECREASED [None]
